FAERS Safety Report 5263770-9 (Version None)
Quarter: 2007Q1

REPORT INFORMATION
  Report Type: 
  Country: None (occurrence: None)
  Receive Date: 20070313
  Receipt Date: 20070301
  Transmission Date: 20070707
  Serious: Yes (Other)
  Sender: FDA-Public Use
  Company Number: GB-GILEAD-2006-0010360

PATIENT
  Age: 40 Year
  Sex: Male

DRUGS (6)
  1. VIREAD [Suspect]
     Dates: start: 20040901
  2. BOOSTED ATAZANAVIR [Concomitant]
  3. COMBIVIR [Concomitant]
  4. CO-TRIMOXAZOLE [Concomitant]
  5. GABAPENTIN [Concomitant]
  6. ACYCLOVIR [Concomitant]

REACTIONS (3)
  - BLOOD HIV RNA INCREASED [None]
  - HYPOPHOSPHATAEMIA [None]
  - RENAL IMPAIRMENT [None]
